FAERS Safety Report 6392977-2 (Version None)
Quarter: 2009Q4

REPORT INFORMATION
  Report Type: 
  Country: None (occurrence: None)
  Receive Date: 20091008
  Receipt Date: 20070604
  Transmission Date: 20100525
  Serious: Yes (Hospitalization)
  Sender: FDA-Public Use
  Company Number: US-ASTRAZENECA-2006UW23244

PATIENT
  Age: 621 Month
  Sex: Male
  Weight: 79.4 kg

DRUGS (9)
  1. SEROQUEL [Suspect]
     Indication: BIPOLAR DISORDER
     Dosage: TOTAL DAILY DOSE 300 MG
     Route: 048
     Dates: start: 20030101
  2. SEROQUEL [Suspect]
     Dosage: 100 - 500 MG
     Route: 048
     Dates: start: 20031218
  3. ZYPREXA [Concomitant]
  4. LAMICTAL [Concomitant]
  5. EFFEXOR XR [Concomitant]
     Dosage: 37.5 - 75 MG
     Dates: start: 20031103
  6. VIAGRA [Concomitant]
     Dates: start: 20030905
  7. LEXAPRO [Concomitant]
     Dates: start: 20040112
  8. XANAX [Concomitant]
     Dates: start: 20041102
  9. PREDNISONE [Concomitant]
     Dates: start: 20051212

REACTIONS (8)
  - DEPRESSED LEVEL OF CONSCIOUSNESS [None]
  - DIABETES MELLITUS [None]
  - GRAND MAL CONVULSION [None]
  - HYPOTENSION [None]
  - MULTIPLE DRUG OVERDOSE INTENTIONAL [None]
  - SUICIDE ATTEMPT [None]
  - TYPE 1 DIABETES MELLITUS [None]
  - TYPE 2 DIABETES MELLITUS [None]
